FAERS Safety Report 13928259 (Version 2)
Quarter: 2017Q3

REPORT INFORMATION
  Report Type: Report from Study
  Country: DE (occurrence: DE)
  Receive Date: 20170901
  Receipt Date: 20170928
  Transmission Date: 20171127
  Serious: Yes (Life-Threatening, Hospitalization, Other)
  Sender: FDA-Public Use
  Company Number: PHHO2016DE014256

PATIENT
  Age: 16 Year
  Sex: Male
  Weight: 63 kg

DRUGS (24)
  1. EVEROLIMUS [Suspect]
     Active Substance: EVEROLIMUS
     Indication: RENAL TRANSPLANT
     Dosage: 2.5-0-2.75 MG PER DAY
     Route: 048
     Dates: start: 20141021, end: 20160506
  2. CONCERTA [Concomitant]
     Active Substance: METHYLPHENIDATE HYDROCHLORIDE
     Indication: AGGRESSION
     Dosage: 36 MG, QD
     Route: 048
     Dates: start: 20140819
  3. ATENOLOL. [Concomitant]
     Active Substance: ATENOLOL
     Indication: HYPERTENSION
     Dosage: 37.5 MG, QD
     Route: 048
     Dates: start: 20160920
  4. CICLOSPORIN [Suspect]
     Active Substance: CYCLOSPORINE
     Indication: RENAL TRANSPLANT
     Dosage: 100 MG, BID
     Route: 048
     Dates: start: 20160506, end: 20160802
  5. THYMOGLOBULIN [Concomitant]
     Active Substance: LAPINE T-LYMPHOCYTE IMMUNE GLOBULIN
     Dosage: 100 MG
     Route: 042
     Dates: start: 20160503
  6. PROGRAF [Suspect]
     Active Substance: TACROLIMUS\TACROLIMUS ANHYDROUS
     Indication: RENAL TRANSPLANT
     Dosage: 9 MG, BID
     Route: 048
     Dates: start: 20140905, end: 20160506
  7. URBASON [Suspect]
     Active Substance: METHYLPREDNISOLONE
     Indication: RENAL TRANSPLANT
     Dosage: 4 MG, BID
     Route: 048
     Dates: start: 20140904
  8. FERRO-SANOL DUODENAL [Concomitant]
     Active Substance: FERROUS GLYCINE SULFATE
     Indication: ANAEMIA
     Dosage: 100 MG, QD
     Route: 048
     Dates: start: 20160113
  9. VALCYTE [Concomitant]
     Active Substance: VALGANCICLOVIR HYDROCHLORIDE
     Indication: PROPHYLAXIS
     Dosage: 100 MG, QD
     Route: 048
     Dates: start: 20160920
  10. ROCALTROL [Concomitant]
     Active Substance: CALCITRIOL
     Indication: PROPHYLAXIS
     Dosage: 0.25 UG, QD
     Route: 048
     Dates: start: 20160920
  11. FLUTIDE [Concomitant]
     Active Substance: FLUTICASONE PROPIONATE
     Indication: ASTHMA
     Dosage: 2 DF, QD (2 HUB PER DAY)
     Route: 065
     Dates: start: 20140819
  12. BICANORM [Concomitant]
     Active Substance: SODIUM BICARBONATE
     Dosage: 2 DF, BID
     Route: 065
     Dates: start: 20150824
  13. PANTOZOL [Concomitant]
     Active Substance: PANTOPRAZOLE SODIUM
     Indication: PROPHYLAXIS
     Dosage: 20 MG, QD
     Route: 048
     Dates: start: 20150824
  14. VIGANTOLETTEN [Concomitant]
     Active Substance: CHOLECALCIFEROL
     Indication: VITAMIN D DEFICIENCY
     Dosage: 1X 2000 IU, QD
     Route: 048
     Dates: start: 20151229
  15. RENAGEL [Concomitant]
     Active Substance: SEVELAMER HYDROCHLORIDE
     Indication: PROPHYLAXIS
     Dosage: 800 MG, TID
     Route: 048
     Dates: start: 20160920
  16. CLEXANE [Concomitant]
     Active Substance: ENOXAPARIN SODIUM
     Indication: PROPHYLAXIS
     Dosage: 20 MG, QD
     Route: 058
     Dates: start: 20160920
  17. ELIQUIS [Concomitant]
     Active Substance: APIXABAN
     Indication: ANTICOAGULANT THERAPY
     Dosage: 1 DF (CAP), QD
     Route: 048
  18. EVEROLIMUS [Suspect]
     Active Substance: EVEROLIMUS
     Dosage: 5.5 MG, BID
     Route: 048
     Dates: start: 20160507
  19. PENTACARINAT [Concomitant]
     Active Substance: PENTAMIDINE ISETHIONATE
     Indication: PROPHYLAXIS
     Dosage: 300 MG, QMO
     Route: 055
     Dates: start: 20160808
  20. BICANORM [Concomitant]
     Active Substance: SODIUM BICARBONATE
     Indication: ACIDOSIS
     Dosage: (2-2-2) 3X2 PER DAY
     Route: 048
     Dates: start: 20140914
  21. RENAGEL [Concomitant]
     Active Substance: SEVELAMER HYDROCHLORIDE
     Indication: HYPERPHOSPHATAEMIA
  22. THYMOGLOBULIN [Concomitant]
     Active Substance: LAPINE T-LYMPHOCYTE IMMUNE GLOBULIN
     Indication: RENAL TRANSPLANT
     Dosage: 75 MG
     Route: 042
     Dates: start: 20160426, end: 20160428
  23. RISPERDAL [Concomitant]
     Active Substance: RISPERIDONE
     Indication: AGGRESSION
     Dosage: 0.5 MG, QD
     Route: 048
     Dates: start: 20091215
  24. AMLODIPINE [Concomitant]
     Active Substance: AMLODIPINE BESYLATE
     Indication: HYPERTENSION
     Dosage: 5 MG, QD
     Route: 048
     Dates: start: 20160225

REACTIONS (3)
  - Shunt occlusion [Recovered/Resolved]
  - Hypotension [Recovered/Resolved]
  - Graft loss [Not Recovered/Not Resolved]

NARRATIVE: CASE EVENT DATE: 20161007
